FAERS Safety Report 14544276 (Version 1)
Quarter: 2018Q1

REPORT INFORMATION
  Report Type: Spontaneous
  Country: US (occurrence: US)
  Receive Date: 20180215
  Receipt Date: 20180215
  Transmission Date: 20180509
  Serious: Yes (Other)
  Sender: FDA-Public Use
  Company Number: None

PATIENT
  Age: 59 Year
  Sex: Male

DRUGS (1)
  1. TEMOZOLOMIDE 10MG AMERIGEN [Suspect]
     Active Substance: TEMOZOLOMIDE
     Indication: CARCINOID SYNDROME
     Dosage: QAM
     Route: 048
     Dates: start: 201801, end: 201802

REACTIONS (4)
  - Epistaxis [None]
  - Abdominal pain [None]
  - Frequent bowel movements [None]
  - Clostridium difficile infection [None]

NARRATIVE: CASE EVENT DATE: 201801
